FAERS Safety Report 8417676-4 (Version None)
Quarter: 2012Q2

REPORT INFORMATION
  Report Type: 
  Country: None (occurrence: None)
  Receive Date: 20120607
  Receipt Date: 20110914
  Transmission Date: 20120825
  Serious: Yes (Hospitalization)
  Sender: FDA-Public Use
  Company Number: RS-ROCHE-1073052

PATIENT
  Sex: Male
  Weight: 87 kg

DRUGS (8)
  1. TACROLIMUS [Suspect]
     Dates: start: 20090301
  2. PREDNISOLONE [Suspect]
     Indication: RENAL TRANSPLANT
     Route: 042
     Dates: start: 20081028
  3. CEFTRIAXON [Concomitant]
     Indication: RENAL TRANSPLANT
     Route: 042
     Dates: start: 20081028
  4. RANISAN [Concomitant]
     Indication: RENAL TRANSPLANT
     Route: 042
     Dates: start: 20081028
  5. IMIPENEM AND CILASTATIN SODIUM [Concomitant]
     Indication: ACUTE RESPIRATORY DISTRESS SYNDROME
     Route: 042
     Dates: start: 20081201
  6. TACROLIMUS [Suspect]
     Indication: RENAL TRANSPLANT
     Route: 048
     Dates: start: 20081028
  7. CELLCEPT [Suspect]
     Indication: RENAL TRANSPLANT
     Route: 048
     Dates: start: 20081028
  8. CELLCEPT [Suspect]
     Dates: start: 20090701

REACTIONS (3)
  - HERNIA REPAIR [None]
  - ACUTE RESPIRATORY DISTRESS SYNDROME [None]
  - VESICAL FISTULA [None]
